FAERS Safety Report 6384224-2 (Version None)
Quarter: 2009Q4

REPORT INFORMATION
  Report Type: 
  Country: None (occurrence: None)
  Receive Date: 20091001
  Receipt Date: 20090924
  Transmission Date: 20100525
  Serious: Yes (Hospitalization)
  Sender: FDA-Public Use
  Company Number: B0594855A

PATIENT
  Age: 68 Year
  Sex: Male

DRUGS (7)
  1. AUGMENTIN '125' [Suspect]
     Indication: SINUSITIS
     Dosage: 1G UNKNOWN
     Route: 042
     Dates: start: 20090611, end: 20090612
  2. CONTRAMAL [Concomitant]
     Route: 065
  3. KARDEGIC [Concomitant]
     Route: 065
  4. SIMVASTATIN [Concomitant]
     Route: 065
  5. ALLOPURINOL [Concomitant]
     Route: 065
  6. ACTRAPID [Concomitant]
     Route: 065
  7. LANTUS [Concomitant]
     Route: 065

REACTIONS (4)
  - DRUG HYPERSENSITIVITY [None]
  - INFUSION SITE INFLAMMATION [None]
  - PHLEBITIS SUPERFICIAL [None]
  - RASH ERYTHEMATOUS [None]
